FAERS Safety Report 16117282 (Version 1)
Quarter: 2019Q2

REPORT INFORMATION
  Report Type: Spontaneous
  Country: US (occurrence: US)
  Receive Date: 20190325
  Receipt Date: 20190325
  Transmission Date: 20190711
  Serious: No
  Sender: FDA-Public Use
  Company Number: None

PATIENT
  Age: 46 Year
  Sex: Male
  Weight: 112.5 kg

DRUGS (8)
  1. HYDROCODONE ACETAMIN [Suspect]
     Active Substance: ACETAMINOPHEN\HYDROCODONE BITARTRATE
     Indication: BACK PAIN
     Dosage: ?          QUANTITY:1 TABLET(S);?
     Route: 048
  2. GABAPENTIN. [Concomitant]
     Active Substance: GABAPENTIN
  3. TAMSULOSIN [Concomitant]
     Active Substance: TAMSULOSIN
  4. FAMOTIDINE. [Concomitant]
     Active Substance: FAMOTIDINE
  5. HYDROCODONE ACETAMIN [Suspect]
     Active Substance: ACETAMINOPHEN\HYDROCODONE BITARTRATE
     Indication: MUSCULAR DYSTROPHY
     Dosage: ?          QUANTITY:1 TABLET(S);?
     Route: 048
  6. FLEXERIL [Concomitant]
     Active Substance: CYCLOBENZAPRINE HYDROCHLORIDE
  7. IBUPROFEN. [Concomitant]
     Active Substance: IBUPROFEN
  8. SUDAFED [Concomitant]
     Active Substance: PSEUDOEPHEDRINE HYDROCHLORIDE

REACTIONS (3)
  - Drug ineffective [None]
  - Feeling abnormal [None]
  - Self-medication [None]

NARRATIVE: CASE EVENT DATE: 20190320
